FAERS Safety Report 16114801 (Version 12)
Quarter: 2019Q3

REPORT INFORMATION
  Report Type: Spontaneous
  Country: US (occurrence: US)
  Receive Date: 20190325
  Receipt Date: 20190909
  Transmission Date: 20191004
  Serious: Yes (Hospitalization)
  Sender: FDA-Public Use
  Company Number: US-ACTELION-A-NJ2019-187851

PATIENT
  Age: 33 Year
  Sex: Female
  Weight: 75.28 kg

DRUGS (6)
  1. VELETRI [Suspect]
     Active Substance: EPOPROSTENOL
     Dosage: 27.5 NG/KG, PER MIN
     Route: 042
  2. ADEMPAS [Concomitant]
     Active Substance: RIOCIGUAT
  3. VELETRI [Suspect]
     Active Substance: EPOPROSTENOL
     Dosage: 14 NG/KG, PER MIN
     Route: 042
  4. VELETRI [Suspect]
     Active Substance: EPOPROSTENOL
     Indication: PULMONARY ARTERIAL HYPERTENSION
     Dosage: 26 NG/KG, PER MIN
     Route: 042
  5. VELETRI [Suspect]
     Active Substance: EPOPROSTENOL
     Dosage: 19 NG/KG, PER MIN
     Route: 042
  6. OPSUMIT [Suspect]
     Active Substance: MACITENTAN
     Indication: PULMONARY ARTERIAL HYPERTENSION
     Dosage: 10 MG, QD
     Route: 048

REACTIONS (19)
  - Heart rate increased [Unknown]
  - Chest pain [Unknown]
  - Catheter site pruritus [Unknown]
  - Pneumonia [Unknown]
  - Pulmonary arterial hypertension [Unknown]
  - Catheter site irritation [Unknown]
  - Headache [Unknown]
  - Device dislocation [Unknown]
  - Malaise [Unknown]
  - Systemic lupus erythematosus [Unknown]
  - Device issue [Unknown]
  - Cardiac failure [Unknown]
  - Hospitalisation [Unknown]
  - Catheter site scar [Unknown]
  - Acute respiratory distress syndrome [Unknown]
  - Dyspnoea [Unknown]
  - Blood potassium decreased [Unknown]
  - Sepsis [Unknown]
  - Chest discomfort [Unknown]

NARRATIVE: CASE EVENT DATE: 20190531
